FAERS Safety Report 8128205-7 (Version None)
Quarter: 2012Q1

REPORT INFORMATION
  Report Type: 
  Country: None (occurrence: None)
  Receive Date: 20120210
  Receipt Date: 20120206
  Transmission Date: 20120608
  Serious: Yes (Hospitalization)
  Sender: FDA-Public Use
  Company Number: US-ALEXION-A201200202

PATIENT
  Sex: Female

DRUGS (1)
  1. SOLIRIS [Suspect]
     Dosage: UNK
     Route: 042

REACTIONS (4)
  - PYREXIA [None]
  - ABASIA [None]
  - BONE PAIN [None]
  - ASTHENIA [None]
